FAERS Safety Report 18665925 (Version 1)
Quarter: 2020Q4

REPORT INFORMATION
  Report Type: Report from Study
  Country: US (occurrence: US)
  Receive Date: 20201226
  Receipt Date: 20201226
  Transmission Date: 20210114
  Serious: Yes (Death, Life-Threatening, Hospitalization, Other)
  Sender: FDA-Public Use
  Company Number: US-GLAXOSMITHKLINE-US2020GSK255364

PATIENT
  Sex: Male

DRUGS (1)
  1. LAMOTRIGINE. [Suspect]
     Active Substance: LAMOTRIGINE
     Indication: BIPOLAR DISORDER
     Dosage: UNK

REACTIONS (12)
  - Stevens-Johnson syndrome [Unknown]
  - Disseminated intravascular coagulation [Fatal]
  - Multiple organ dysfunction syndrome [Fatal]
  - Conjunctivitis [Unknown]
  - Viral rash [Unknown]
  - Rash morbilliform [Unknown]
  - Blood creatinine increased [Unknown]
  - Hepatic failure [Fatal]
  - Drug eruption [Unknown]
  - Unresponsive to stimuli [Unknown]
  - Renal failure [Fatal]
  - Thrombosis [Fatal]
